FAERS Safety Report 21161248 (Version 3)
Quarter: 2023Q4

REPORT INFORMATION
  Report Type: Spontaneous
  Country: CA (occurrence: None)
  Receive Date: 20220802
  Receipt Date: 20231120
  Transmission Date: 20240109
  Serious: Yes (Life-Threatening, Hospitalization)
  Sender: FDA-Public Use
  Company Number: CA-ROCHE-3150151

PATIENT
  Age: 2 Year
  Sex: Male
  Weight: 16 kg

DRUGS (1)
  1. SOMATROPIN [Suspect]
     Active Substance: SOMATROPIN
     Indication: Prader-Willi syndrome
     Route: 058

REACTIONS (5)
  - Asthma [Recovered/Resolved]
  - COVID-19 [Recovered/Resolved]
  - Gastroenteritis [Recovered/Resolved]
  - Application site discomfort [Recovered/Resolved]
  - Intentional dose omission [Unknown]
